FAERS Safety Report 25421423 (Version 2)
Quarter: 2025Q2

REPORT INFORMATION
  Report Type: Spontaneous
  Country: US (occurrence: US)
  Receive Date: 20250611
  Receipt Date: 20250613
  Transmission Date: 20250717
  Serious: No
  Sender: NOVARTIS
  Company Number: US-002147023-NVSC2025US092914

PATIENT
  Sex: Female

DRUGS (2)
  1. INCLISIRAN [Suspect]
     Active Substance: INCLISIRAN
     Indication: Hyperlipidaemia
     Route: 058
     Dates: start: 20250415
  2. INCLISIRAN [Suspect]
     Active Substance: INCLISIRAN
     Indication: Arteriosclerosis

REACTIONS (1)
  - Blood glucose increased [Unknown]
